FAERS Safety Report 7577809-9 (Version None)
Quarter: 2011Q2

REPORT INFORMATION
  Report Type: 
  Country: None (occurrence: None)
  Receive Date: 20110628
  Receipt Date: 20110615
  Transmission Date: 20111010
  Serious: Yes (Hospitalization, Other)
  Sender: FDA-Public Use
  Company Number: PHHY2011DE47588

PATIENT
  Sex: Male
  Weight: 104 kg

DRUGS (1)
  1. AFINITOR [Suspect]
     Indication: RENAL CELL CARCINOMA
     Dosage: 10 MG, DAILY
     Route: 048
     Dates: start: 20110510, end: 20110520

REACTIONS (10)
  - RHABDOMYOLYSIS [None]
  - BLOOD CREATINE PHOSPHOKINASE INCREASED [None]
  - HYPERGLYCAEMIA [None]
  - RENAL FAILURE [None]
  - ANAEMIA [None]
  - HYPERCHOLESTEROLAEMIA [None]
  - THROMBOCYTOPENIA [None]
  - COAGULATION FACTOR DECREASED [None]
  - LIVER FUNCTION TEST ABNORMAL [None]
  - HYPOPROTEINAEMIA [None]
